FAERS Safety Report 8588265-6 (Version None)
Quarter: 2012Q3

REPORT INFORMATION
  Report Type: 
  Country: None (occurrence: None)
  Receive Date: 20120803
  Receipt Date: 20120803
  Transmission Date: 20120928
  Serious: No
  Sender: FDA-Public Use
  Company Number: None

PATIENT
  Sex: Male
  Weight: 86.1834 kg

DRUGS (2)
  1. CLOPIDOGREL [Suspect]
     Dosage: 75MG QD QD ORAL
     Route: 048
     Dates: start: 20100101
  2. LISINOPRIL [Suspect]
     Indication: HYPERTENSION
     Dosage: 20MG BID ORAL
     Route: 048
     Dates: start: 20100101

REACTIONS (1)
  - URTICARIA [None]
